FAERS Safety Report 9441168 (Version 2)
Quarter: 2013Q3

REPORT INFORMATION
  Report Type: Report from Study
  Country: JP (occurrence: JP)
  Receive Date: 20130805
  Receipt Date: 20130903
  Transmission Date: 20140515
  Serious: Yes (Other)
  Sender: FDA-Public Use
  Company Number: JP-JNJFOC-20130801256

PATIENT
  Age: 56 Year
  Sex: Male
  Weight: 77 kg

DRUGS (16)
  1. STELARA [Suspect]
     Indication: PSORIASIS
     Route: 058
     Dates: start: 20130617
  2. STELARA [Suspect]
     Indication: PSORIASIS
     Dosage: 5TH DOSE
     Route: 058
     Dates: start: 20130318, end: 20130318
  3. STELARA [Suspect]
     Indication: PSORIASIS
     Route: 058
     Dates: start: 20121225, end: 20121225
  4. STELARA [Suspect]
     Indication: PSORIASIS
     Route: 058
     Dates: start: 20121002, end: 20121002
  5. STELARA [Suspect]
     Indication: PSORIASIS
     Route: 058
     Dates: start: 20120711, end: 20120711
  6. STELARA [Suspect]
     Indication: PSORIASIS
     Route: 058
     Dates: start: 20120611, end: 20120611
  7. OXAROL [Concomitant]
     Indication: PSORIASIS
     Route: 061
  8. MYSER [Concomitant]
     Indication: PSORIASIS
     Route: 061
  9. AMLODIN OD [Concomitant]
     Indication: HYPERTENSION
     Route: 048
  10. NORVASC [Concomitant]
     Indication: HYPERTENSION
     Route: 048
  11. ALLOZYM [Concomitant]
     Indication: HYPERURICAEMIA
     Route: 048
  12. ZYLORIC [Concomitant]
     Indication: HYPERURICAEMIA
     Route: 048
  13. DIOVAN [Concomitant]
     Indication: HYPERTENSION
     Route: 048
  14. ALLEGRA [Concomitant]
     Indication: PSORIASIS
     Route: 048
     Dates: start: 20121225
  15. DERMOVATE [Concomitant]
     Indication: PSORIASIS
     Route: 061
     Dates: start: 20130617
  16. FLOMOX [Concomitant]
     Indication: PROPHYLAXIS
     Route: 048
     Dates: start: 20130506, end: 20130513

REACTIONS (1)
  - Cellulitis [Recovered/Resolved]
